FAERS Safety Report 15531080 (Version 1)
Quarter: 2018Q4

REPORT INFORMATION
  Report Type: Spontaneous
  Country: FR (occurrence: FR)
  Receive Date: 20181019
  Receipt Date: 20181019
  Transmission Date: 20190205
  Serious: Yes (Hospitalization)
  Sender: FDA-Public Use
  Company Number: FR-TEVA-2018-FR-965966

PATIENT
  Age: 65 Year
  Sex: Female

DRUGS (3)
  1. AMOXICILLINE TRIHYDRATEE [Suspect]
     Active Substance: AMOXICILLIN
     Indication: PYREXIA
     Dosage: 2 GRAM DAILY;
     Route: 048
     Dates: start: 20180909, end: 20180909
  2. NEXAVAR [Suspect]
     Active Substance: SORAFENIB
     Indication: CHOROID MELANOMA
     Dosage: 400 MILLIGRAM DAILY;
     Route: 048
     Dates: start: 20180829, end: 20180908
  3. PARACETAMOL [Suspect]
     Active Substance: ACETAMINOPHEN
     Indication: PYREXIA
     Route: 048
     Dates: start: 20180909

REACTIONS (2)
  - Pruritus [Recovered/Resolved]
  - Rash maculo-papular [Recovered/Resolved]

NARRATIVE: CASE EVENT DATE: 20180910
